FAERS Safety Report 4705732-3 (Version None)
Quarter: 2005Q2

REPORT INFORMATION
  Report Type: 
  Country: None (occurrence: None)
  Receive Date: 20050629
  Receipt Date: 20050617
  Transmission Date: 20051028
  Serious: Yes (Other)
  Sender: FDA-Public Use
  Company Number: 2005-BP-10595RO

PATIENT
  Age: 60 Year
  Sex: Male

DRUGS (5)
  1. MIRTAZAPINE [Suspect]
     Indication: DEPRESSION
     Dosage: 15 MG DAILY, PO
     Route: 048
  2. ESCITALOPRAM OXALATE [Suspect]
     Indication: DEPRESSION
     Dosage: 20 MG DAILY, PO
     Route: 048
  3. VENLAFAXINE HCL [Suspect]
     Indication: DEPRESSION
     Dosage: 150 MG DAILY, PO
     Route: 048
  4. OMEPRAZOLE [Concomitant]
  5. IRBESARTAN [Concomitant]

REACTIONS (4)
  - DRUG INTERACTION [None]
  - EPISTAXIS [None]
  - PLATELET AGGREGATION [None]
  - RECTAL HAEMORRHAGE [None]
